FAERS Safety Report 23172147 (Version 1)
Quarter: 2023Q4

REPORT INFORMATION
  Report Type: Spontaneous
  Country: US (occurrence: US)
  Receive Date: 20231110
  Receipt Date: 20231110
  Transmission Date: 20240110
  Serious: Yes (Hospitalization, Other)
  Sender: FDA-Public Use
  Company Number: US-SA-SAC20231107000074

PATIENT

DRUGS (5)
  1. PLAVIX [Suspect]
     Active Substance: CLOPIDOGREL BISULFATE
     Dosage: UNK
     Route: 065
  2. LIPITOR [Concomitant]
     Active Substance: ATORVASTATIN CALCIUM
  3. METFORMIN [Concomitant]
     Active Substance: METFORMIN HYDROCHLORIDE
  4. DEXAMETHASONE [Concomitant]
     Active Substance: DEXAMETHASONE
  5. PAXLOVID [Concomitant]
     Active Substance: NIRMATRELVIR\RITONAVIR

REACTIONS (3)
  - Haemorrhage [Unknown]
  - Myocardial infarction [Unknown]
  - Pneumonia [Unknown]
